FAERS Safety Report 4803099-3 (Version None)
Quarter: 2005Q4

REPORT INFORMATION
  Report Type: 
  Country: None (occurrence: None)
  Receive Date: 20051017
  Receipt Date: 20051017
  Transmission Date: 20060501
  Serious: Yes (Hospitalization)
  Sender: FDA-Public Use
  Company Number: None

PATIENT
  Age: 90 Year
  Sex: Male

DRUGS (7)
  1. GLYBURIDE [Suspect]
     Dosage: 5MG PO BID
     Route: 048
     Dates: start: 20050701, end: 20050703
  2. AMIODARONE HCL [Concomitant]
  3. CLONIDINE HCL [Concomitant]
  4. FELODIPINE SA [Concomitant]
  5. FUROSEMIDE [Concomitant]
  6. MULTI-VITAMIN [Concomitant]
  7. SODIUM CH [Concomitant]

REACTIONS (1)
  - BLOOD GLUCOSE DECREASED [None]
